FAERS Safety Report 8759884 (Version 2)
Quarter: 2012Q4

REPORT INFORMATION
  Report Type: 
  Country: US (occurrence: US)
  Receive Date: 20120829
  Receipt Date: 20121130
  Transmission Date: 20130627
  Serious: Yes (Death)
  Sender: FDA-Public Use
  Company Number: US-ROCHE-1107017

PATIENT
  Sex: Male

DRUGS (4)
  1. AVASTIN [Suspect]
     Indication: GLIOBLASTOMA
     Route: 042
     Dates: start: 20120604, end: 20120702
  2. GABAPENTIN [Concomitant]
     Indication: CONVULSION
     Route: 048
     Dates: start: 20120707
  3. WARFARIN [Concomitant]
     Indication: DEEP VEIN THROMBOSIS
     Route: 048
     Dates: start: 20120707
  4. DEXAMETHASON [Concomitant]
     Indication: OEDEMA
     Route: 048

REACTIONS (1)
  - Glioblastoma [Fatal]
